FAERS Safety Report 12264691 (Version 2)
Quarter: 2016Q2

REPORT INFORMATION
  Report Type: Spontaneous
  Country: GB (occurrence: GB)
  Receive Date: 20160413
  Receipt Date: 20160425
  Transmission Date: 20160815
  Serious: Yes (Other)
  Sender: FDA-Public Use
  Company Number: GB-PFIZER INC-2016199309

PATIENT
  Age: 61 Year
  Sex: Male
  Weight: 96.61 kg

DRUGS (7)
  1. NEURONTIN [Suspect]
     Active Substance: GABAPENTIN
     Indication: INTERVERTEBRAL DISC PROTRUSION
     Dosage: 2
     Route: 048
     Dates: start: 20160322, end: 20160326
  2. BOOTS PARACETAMOL [Concomitant]
     Dosage: UNK
  3. CODEIN [Concomitant]
     Active Substance: CODEINE
  4. ORAMORPH [Concomitant]
     Active Substance: MORPHINE SULFATE
  5. CRESCENT PHARMA NAPROXEN [Concomitant]
  6. NUROFEN PLUS [Concomitant]
     Active Substance: CODEINE PHOSPHATE\IBUPROFEN
  7. AMITRIPTYLINE [Concomitant]
     Active Substance: AMITRIPTYLINE
     Dosage: UNK

REACTIONS (3)
  - Disorientation [Not Recovered/Not Resolved]
  - Drug ineffective [Unknown]
  - Somnolence [Not Recovered/Not Resolved]

NARRATIVE: CASE EVENT DATE: 20160326
